FAERS Safety Report 8387349-5 (Version None)
Quarter: 2012Q2

REPORT INFORMATION
  Report Type: 
  Country: None (occurrence: None)
  Receive Date: 20120525
  Receipt Date: 20120522
  Transmission Date: 20120825
  Serious: Yes (Hospitalization)
  Sender: FDA-Public Use
  Company Number: DE-BRISTOL-MYERS SQUIBB COMPANY-16597999

PATIENT
  Sex: Male
  Weight: 4 kg

DRUGS (1)
  1. ABILIFY [Suspect]
     Route: 064

REACTIONS (1)
  - JAUNDICE NEONATAL [None]
